FAERS Safety Report 18957433 (Version 1)
Quarter: 2021Q1

REPORT INFORMATION
  Report Type: Spontaneous
  Country: US (occurrence: US)
  Receive Date: 20210301
  Receipt Date: 20210301
  Transmission Date: 20210420
  Serious: Yes (Other)
  Sender: FDA-Public Use
  Company Number: None

PATIENT
  Age: 61 Year
  Sex: Male
  Weight: 98.88 kg

DRUGS (1)
  1. DESCOVY [Suspect]
     Active Substance: EMTRICITABINE\TENOFOVIR ALAFENAMIDE FUMARATE
     Dates: start: 20210226, end: 20210227

REACTIONS (5)
  - Skin burning sensation [None]
  - Contusion [None]
  - Discomfort [None]
  - Testicular swelling [None]
  - Insomnia [None]

NARRATIVE: CASE EVENT DATE: 20210226
